FAERS Safety Report 8454137 (Version 2)
Quarter: 2013Q1

REPORT INFORMATION
  Report Type: Spontaneous
  Country: US (occurrence: US)
  Receive Date: 20120312
  Receipt Date: 20130313
  Transmission Date: 20140127
  Serious: Yes (Other)
  Sender: FDA-Public Use
  Company Number: US-ABBOTT-11P-163-0841542-00

PATIENT
  Age: 38 Year
  Sex: Female
  Weight: 63.56 kg

DRUGS (8)
  1. DEPAKOTE [Suspect]
     Indication: EPILEPSY
     Route: 048
     Dates: start: 20090101
  2. NEURONTIN [Suspect]
     Indication: NERVE INJURY
     Dates: start: 2007
  3. DILANTIN [Suspect]
     Indication: EPILEPSY
     Route: 048
     Dates: start: 20110115
  4. TOPAMAX [Concomitant]
     Indication: MIGRAINE
  5. ESTRADIOL [Concomitant]
     Indication: PRODUCT USED FOR UNKNOWN INDICATION
  6. AMITRIPTYLINE [Concomitant]
     Indication: MIGRAINE
  7. AMITRIPTYLINE [Concomitant]
     Indication: SLEEP DISORDER
  8. PERCOCET [Concomitant]
     Indication: PAIN

REACTIONS (1)
  - Convulsion [None]
